FAERS Safety Report 8888112 (Version 2)
Quarter: 2012Q4

REPORT INFORMATION
  Report Type: 
  Country: DE (occurrence: DE)
  Receive Date: 20121106
  Receipt Date: 20121218
  Transmission Date: 20130627
  Serious: Yes (Other)
  Sender: FDA-Public Use
  Company Number: DE-PFIZER INC-2012274360

PATIENT
  Age: 52 Year
  Sex: Female
  Weight: 65 kg

DRUGS (3)
  1. LYRICA [Suspect]
     Indication: ANXIETY DISORDER
     Dosage: 75 mg, 1x/day
     Route: 048
     Dates: start: 2010
  2. LYRICA [Suspect]
     Dosage: 150 mg, 1x/day
     Route: 048
     Dates: start: 201005
  3. AMITRIPTYLINE [Concomitant]
     Indication: FIBROMYALGIA SYNDROME
     Dosage: 25 mg, 1x/day
     Route: 048
     Dates: start: 201005

REACTIONS (1)
  - Keratoconus [Recovered/Resolved]
